FAERS Safety Report 6133597-4 (Version None)
Quarter: 2009Q1

REPORT INFORMATION
  Report Type: 
  Country: None (occurrence: None)
  Receive Date: 20090326
  Receipt Date: 20090316
  Transmission Date: 20090719
  Serious: Yes (Life-Threatening)
  Sender: FDA-Public Use
  Company Number: DK-PURDUE-GBR_2009_0004982

PATIENT
  Age: 70 Year
  Sex: Male

DRUGS (2)
  1. MORPHINE SULFATE [Suspect]
     Indication: SUICIDE ATTEMPT
     Route: 065
  2. BENZODIAZEPINE DERIVATIVES [Suspect]
     Indication: SUICIDE ATTEMPT
     Route: 065

REACTIONS (4)
  - GLASGOW COMA SCALE ABNORMAL [None]
  - OVERDOSE [None]
  - PNEUMONIA ASPIRATION [None]
  - RESPIRATORY FAILURE [None]
